FAERS Safety Report 6965777 (Version 3)
Quarter: 2015Q1

REPORT INFORMATION
  Report Type: Spontaneous
  Country: GR (occurrence: None)
  Receive Date: 20090331
  Receipt Date: 20150226
  Transmission Date: 20150721
  Serious: Yes (Life-Threatening, Hospitalization, Other)
  Sender: FDA-Public Use
  Company Number: 2009000822

PATIENT
  Age: 73 Year
  Sex: Male

DRUGS (11)
  1. MEDROL [Concomitant]
     Active Substance: METHYLPREDNISOLONE
  2. ZOFER (ONDANSETRON HYDROCHLORIDE) FORMULATION UNKNOWN [Concomitant]
  3. DECODERM (FLUPREDNIDENE ACETATE) FORMULATION UNKNOWN [Concomitant]
  4. ZOFRAN /00955301/ (ONDANSETRON) FORMULATION UNKNOWN [Concomitant]
  5. ZANTAC (RANITIDINE HYDROCHLORIDE) FORMULATION UNKNOWN [Concomitant]
  6. ERLOTINIB (ERLOTINIB HYDROCHLORIDE) TABLET [Suspect]
     Active Substance: ERLOTINIB HYDROCHLORIDE
     Indication: NON-SMALL CELL LUNG CANCER
     Dosage: 150 MG, TWICE DAILY, ORAL
     Route: 048
     Dates: start: 20090114, end: 20090219
  7. ZIRTEK (CETIRIZINE HYDROCHLORIDE) FORMULATION UNKNOWN [Concomitant]
  8. CO-DIOVAN (HYDROCHLOROTHIAZIDE, VALSARTAN) FORMULATION UNKNOWN [Concomitant]
  9. LANTUS (INSULIN) GLARGINE) FORMULATION UNKNOWN [Concomitant]
  10. FENISTIL (DIMETINDENE MALEATE) FORMULATION UNKNOWN [Concomitant]
  11. DOCETAXEL. [Suspect]
     Active Substance: DOCETAXEL
     Indication: NON-SMALL CELL LUNG CANCER
     Dosage: 150 MG, TWICE DAILY, INTRAVENOUS
     Route: 042
     Dates: start: 20090128

REACTIONS (6)
  - Dizziness [None]
  - Pyrexia [None]
  - Anaemia [None]
  - Fatigue [None]
  - PO2 decreased [None]
  - Infection [None]

NARRATIVE: CASE EVENT DATE: 20090217
